FAERS Safety Report 13957554 (Version 3)
Quarter: 2017Q3

REPORT INFORMATION
  Report Type: Report from Study
  Country: None (occurrence: UY)
  Receive Date: 20170912
  Receipt Date: 20170928
  Transmission Date: 20171128
  Serious: Yes (Hospitalization)
  Sender: FDA-Public Use
  Company Number: UY-ABBVIE-17K-168-2098541-00

PATIENT
  Age: 53 Year
  Sex: Female

DRUGS (1)
  1. HUMIRA [Suspect]
     Active Substance: ADALIMUMAB
     Indication: RHEUMATOID ARTHRITIS
     Route: 058
     Dates: start: 20170111

REACTIONS (8)
  - Dyspepsia [Recovered/Resolved]
  - Vomiting [Recovered/Resolved]
  - Abdominal pain upper [Recovered/Resolved]
  - Muscle contracture [Unknown]
  - Dyspepsia [Recovering/Resolving]
  - Intervertebral disc protrusion [Unknown]
  - Pyrexia [Recovered/Resolved]
  - Vertebral column mass [Not Recovered/Not Resolved]

NARRATIVE: CASE EVENT DATE: 2017
